FAERS Safety Report 8200552-X (Version None)
Quarter: 2012Q1

REPORT INFORMATION
  Report Type: 
  Country: None (occurrence: None)
  Receive Date: 20120312
  Receipt Date: 20120301
  Transmission Date: 20120608
  Serious: Yes (Disabling)
  Sender: FDA-Public Use
  Company Number: US-US-EMD SERONO, INC.-7114472

PATIENT
  Sex: Female

DRUGS (3)
  1. PROVIGIL [Concomitant]
     Indication: PRODUCT USED FOR UNKNOWN INDICATION
  2. REBIF [Suspect]
     Indication: MULTIPLE SCLEROSIS
     Route: 058
     Dates: start: 20120123
  3. REBIF [Suspect]
     Route: 058
     Dates: start: 20120301

REACTIONS (6)
  - NAUSEA [None]
  - DYSURIA [None]
  - MULTIPLE SCLEROSIS RELAPSE [None]
  - POLLAKIURIA [None]
  - ACTIVITIES OF DAILY LIVING IMPAIRED [None]
  - MICTURITION URGENCY [None]
